FAERS Safety Report 6462027-8 (Version None)
Quarter: 2009Q4

REPORT INFORMATION
  Report Type: 
  Country: None (occurrence: None)
  Receive Date: 20091123
  Receipt Date: 20091111
  Transmission Date: 20100525
  Serious: No
  Sender: FDA-Public Use
  Company Number: 1-20482354

PATIENT
  Age: 16 Year
  Sex: Male
  Weight: 58.9676 kg

DRUGS (9)
  1. SOLODYN [Suspect]
     Indication: ACNE
     Dosage: 90 MG ONCE DAILY, ORAL
     Route: 048
     Dates: start: 20090322, end: 20091001
  2. CONCERTA [Concomitant]
  3. CELEXA [Concomitant]
  4. PLEXION (SODIUM SULFACETAMIDE 10 % AND SULFUR 5 %) CREAM [Concomitant]
  5. TAZORAC [Concomitant]
  6. GINKGO BILOBA [Concomitant]
  7. UNSPECIFIED VITAMINS [Concomitant]
  8. PULMICORT [Concomitant]
  9. ALBUTEROL [Concomitant]

REACTIONS (14)
  - ATTENTION DEFICIT/HYPERACTIVITY DISORDER [None]
  - CONVULSION [None]
  - DEFORMITY [None]
  - DEPRESSION [None]
  - DYSKINESIA [None]
  - ELECTRIC SHOCK [None]
  - MUSCLE TWITCHING [None]
  - NASOPHARYNGITIS [None]
  - OPHTHALMOPLEGIA [None]
  - PAIN [None]
  - SPINAL DISORDER [None]
  - SYRINGOMYELIA [None]
  - TIC [None]
  - TREMOR [None]
